FAERS Safety Report 6710416-6 (Version None)
Quarter: 2010Q2

REPORT INFORMATION
  Report Type: 
  Country: None (occurrence: None)
  Receive Date: 20100504
  Receipt Date: 20100426
  Transmission Date: 20101027
  Serious: Yes (Other)
  Sender: FDA-Public Use
  Company Number: US-PFIZER INC-2010014931

PATIENT
  Sex: Female

DRUGS (2)
  1. NEURONTIN [Suspect]
     Indication: NEUROPATHY PERIPHERAL
     Dosage: 100 MG, 1X/DAY
     Route: 048
     Dates: start: 20080623
  2. POTASSIUM CHLORIDE [Suspect]
     Dosage: UNK
     Route: 042

REACTIONS (7)
  - BEDRIDDEN [None]
  - BURNING SENSATION [None]
  - CONVULSION [None]
  - DISTURBANCE IN ATTENTION [None]
  - FEELING ABNORMAL [None]
  - MENTAL IMPAIRMENT [None]
  - THINKING ABNORMAL [None]
